FAERS Safety Report 5026069-1 (Version None)
Quarter: 2006Q2

REPORT INFORMATION
  Report Type: 
  Country: None (occurrence: None)
  Receive Date: 20060612
  Receipt Date: 20060612
  Transmission Date: 20061013
  Serious: No
  Sender: FDA-Public Use
  Company Number: None

PATIENT
  Age: 27 Year
  Sex: Male
  Weight: 81.6475 kg

DRUGS (1)
  1. PROZAC [Suspect]
     Indication: DEPRESSION

REACTIONS (5)
  - FATIGUE [None]
  - HYPOGONADISM [None]
  - HYPOTRICHOSIS [None]
  - LIBIDO DECREASED [None]
  - STRESS [None]
